FAERS Safety Report 4683039-0 (Version None)
Quarter: 2005Q2

REPORT INFORMATION
  Report Type: 
  Country: None (occurrence: None)
  Receive Date: 20050606
  Receipt Date: 20050309
  Transmission Date: 20051028
  Serious: Yes (Hospitalization, Disabling, Other)
  Sender: FDA-Public Use
  Company Number: US-MERCK-0503USA02112

PATIENT
  Age: 64 Year
  Sex: Female
  Weight: 73 kg

DRUGS (8)
  1. VIOXX [Suspect]
     Indication: ARTHRITIS
     Route: 048
     Dates: start: 19991126, end: 20041001
  2. VIOXX [Suspect]
     Indication: CERVICOBRACHIAL SYNDROME
     Route: 048
     Dates: start: 19991126, end: 20041001
  3. TRIAMTERENE [Concomitant]
     Route: 048
  4. CLARITIN-D [Concomitant]
     Route: 048
  5. FLONASE [Concomitant]
     Route: 055
  6. VALTREX [Concomitant]
     Route: 048
  7. PREMARIN [Concomitant]
     Indication: HORMONE REPLACEMENT THERAPY
     Route: 065
     Dates: start: 19980826, end: 20011201
  8. VITAMINS (UNSPECIFIED) [Concomitant]
     Route: 065

REACTIONS (19)
  - ANAL SPHINCTER ATONY [None]
  - ANXIETY [None]
  - ATHEROSCLEROSIS [None]
  - BURSITIS [None]
  - CARDIAC ARREST [None]
  - CARPAL TUNNEL SYNDROME [None]
  - DEPRESSION [None]
  - DIABETES MELLITUS [None]
  - INTERVERTEBRAL DISC PROTRUSION [None]
  - LOSS OF CONSCIOUSNESS [None]
  - MYOCARDIAL INFARCTION [None]
  - NEOPLASM MALIGNANT [None]
  - PAIN [None]
  - RADICULOPATHY [None]
  - RECTAL PROLAPSE [None]
  - SPINAL COLUMN STENOSIS [None]
  - SYNCOPE VASOVAGAL [None]
  - TENDONITIS [None]
  - TENOSYNOVITIS [None]
